FAERS Safety Report 23981689 (Version 1)
Quarter: 2024Q2

REPORT INFORMATION
  Report Type: Spontaneous
  Country: US (occurrence: US)
  Receive Date: 20240617
  Receipt Date: 20240617
  Transmission Date: 20240716
  Serious: Yes (Other)
  Sender: FDA-Public Use
  Company Number: US-002147023-NVSC2024US125593

PATIENT
  Sex: Female

DRUGS (2)
  1. ZOMETA [Suspect]
     Active Substance: ZOLEDRONIC ACID
     Indication: Blood calcium increased
     Dosage: UNK (UNKNOWN DOSAGE WAS BASED ON WEIGHT INFUSION ONCE A  MONTH)
     Route: 065
  2. IBRANCE [Suspect]
     Active Substance: PALBOCICLIB
     Indication: Breast cancer metastatic
     Dosage: 75 MG, QD (75MG A DAY FOR THREE WEEKS AND THEN OFF OF THE  MEDICATION FOR ONE WEEK)
     Route: 065

REACTIONS (5)
  - Osteonecrosis of jaw [Recovered/Resolved]
  - Infection [Recovered/Resolved]
  - White blood cell count decreased [Unknown]
  - Red blood cell count decreased [Unknown]
  - Haemoglobin decreased [Unknown]

NARRATIVE: CASE EVENT DATE: 20240201
